FAERS Safety Report 20444373 (Version 1)
Quarter: 2022Q1

REPORT INFORMATION
  Report Type: Report from Study
  Country: EG (occurrence: EG)
  Receive Date: 20220208
  Receipt Date: 20220208
  Transmission Date: 20220424
  Serious: Yes (Other)
  Sender: FDA-Public Use
  Company Number: EG-NOVARTISPH-NVSC2022EG024539

PATIENT
  Sex: Female

DRUGS (8)
  1. GILENYA [Suspect]
     Active Substance: FINGOLIMOD HYDROCHLORIDE
     Indication: Relapsing-remitting multiple sclerosis
     Dosage: 0.5 MG, QD
     Route: 048
     Dates: start: 2019
  2. VITAMIN E [Concomitant]
     Active Substance: .ALPHA.-TOCOPHEROL
     Indication: Multiple sclerosis
     Dosage: UNK UNK, BID
     Route: 048
     Dates: start: 2018
  3. DULOXETINE [Concomitant]
     Active Substance: DULOXETINE
     Indication: Multiple sclerosis
     Dosage: UNK UNK, BID
     Route: 048
     Dates: start: 202111
  4. OMEGA 3 [Concomitant]
     Active Substance: CAPSAICIN
     Indication: Multiple sclerosis
     Dosage: UNK UNK, BID
     Route: 048
     Dates: start: 202111
  5. OSSOFORTIN [Concomitant]
     Indication: Multiple sclerosis
     Dosage: UNK, QD
     Route: 048
     Dates: start: 2019
  6. TRYPTIZOL [Concomitant]
     Active Substance: AMITRIPTYLINE HYDROCHLORIDE
     Indication: Multiple sclerosis
     Dosage: UNK, QD
     Route: 048
     Dates: start: 2020
  7. NORMATEN PLUS [Concomitant]
     Indication: Multiple sclerosis
     Dosage: UNK, QD
     Route: 048
     Dates: start: 2021
  8. VITAMIN B12 [Concomitant]
     Active Substance: CYANOCOBALAMIN
     Indication: Multiple sclerosis
     Dosage: UNK, QD
     Route: 048
     Dates: start: 2020

REACTIONS (8)
  - Band sensation [Recovering/Resolving]
  - Insomnia [Recovering/Resolving]
  - Spinal pain [Recovering/Resolving]
  - Alopecia [Not Recovered/Not Resolved]
  - Headache [Not Recovered/Not Resolved]
  - Off label use [Recovered/Resolved]
  - White blood cell count decreased [Not Recovered/Not Resolved]
  - Lymphocyte count abnormal [Not Recovered/Not Resolved]

NARRATIVE: CASE EVENT DATE: 20190101
